FAERS Safety Report 11895379 (Version 1)
Quarter: 2016Q1

REPORT INFORMATION
  Report Type: Spontaneous
  Country: FR (occurrence: FR)
  Receive Date: 20160107
  Receipt Date: 20160107
  Transmission Date: 20160526
  Serious: Yes (Hospitalization)
  Sender: FDA-Public Use
  Company Number: FR-JNJFOC-20160101554

PATIENT
  Age: 52 Year
  Sex: Female

DRUGS (1)
  1. EPITOMAX [Suspect]
     Active Substance: TOPIRAMATE
     Indication: MIGRAINE PROPHYLAXIS
     Route: 048
     Dates: start: 201505, end: 20151208

REACTIONS (1)
  - Condition aggravated [Recovering/Resolving]

NARRATIVE: CASE EVENT DATE: 20151012
